FAERS Safety Report 9086085 (Version 1)
Quarter: 2013Q1

REPORT INFORMATION
  Report Type: Report from Study
  Country: US (occurrence: US)
  Receive Date: 20130131
  Receipt Date: 20130131
  Transmission Date: 20140127
  Serious: No
  Sender: FDA-Public Use
  Company Number: US-ABBOTT-12P-163-1010701-00

PATIENT
  Age: 39 Year
  Sex: Female

DRUGS (4)
  1. HUMIRA [Suspect]
     Indication: CROHN^S DISEASE
     Dates: start: 201101
  2. PENTASA [Concomitant]
     Indication: CROHN^S DISEASE
     Route: 048
  3. MULTIVITAMIN [Concomitant]
     Indication: MEDICAL DIET
     Dosage: OCCASIONAL
  4. VITAMIN D [Concomitant]
     Indication: MEDICAL DIET
     Dosage: OCCASIONAL

REACTIONS (2)
  - Injection site haemorrhage [Not Recovered/Not Resolved]
  - Injection site pain [Not Recovered/Not Resolved]
